FAERS Safety Report 5304684-5 (Version None)
Quarter: 2007Q2

REPORT INFORMATION
  Report Type: 
  Country: None (occurrence: None)
  Receive Date: 20070416
  Receipt Date: 20061215
  Transmission Date: 20071010
  Serious: Yes (Death, Hospitalization)
  Sender: FDA-Public Use
  Company Number: 2006002349

PATIENT
  Age: 4 Year
  Sex: Female

DRUGS (3)
  1. ERLOTINIB (TABLET) [Suspect]
     Indication: EPENDYMOMA MALIGNANT
     Dosage: 100 MG, ORAL
     Route: 048
     Dates: start: 20061017, end: 20061204
  2. ACETAMINOPHEN [Concomitant]
  3. PREDNISOLONE [Concomitant]

REACTIONS (4)
  - COMA [None]
  - DISEASE PROGRESSION [None]
  - NEUROLOGICAL SYMPTOM [None]
  - TUMOUR HAEMORRHAGE [None]
